FAERS Safety Report 6441073-4 (Version None)
Quarter: 2009Q4

REPORT INFORMATION
  Report Type: 
  Country: None (occurrence: None)
  Receive Date: 20091116
  Receipt Date: 20091105
  Transmission Date: 20100525
  Serious: Yes (Hospitalization)
  Sender: FDA-Public Use
  Company Number: IL-NOVOPROD-291817

PATIENT
  Age: 9 Year
  Sex: Female

DRUGS (2)
  1. INSULATARD [Suspect]
     Indication: TYPE 1 DIABETES MELLITUS
  2. SULTHIAME [Concomitant]

REACTIONS (5)
  - CONVULSION [None]
  - HYPOGLYCAEMIA [None]
  - MUSCLE SPASMS [None]
  - PRODUCT QUALITY ISSUE [None]
  - RESPIRATORY DISTRESS [None]
